FAERS Safety Report 8992829 (Version 1)
Quarter: 2013Q1

REPORT INFORMATION
  Report Type: Report from Study
  Country: JP (occurrence: JP)
  Receive Date: 20130102
  Receipt Date: 20130102
  Transmission Date: 20140127
  Serious: Yes (Death)
  Sender: FDA-Public Use
  Company Number: JP-MERCK-1209JPN005798

PATIENT
  Age: 87 Year
  Sex: Female

DRUGS (7)
  1. COSOPT OPHTHALMIC SOLUTION [Suspect]
     Indication: GLAUCOMA
     Dosage: 2 GTT, QD
     Route: 047
     Dates: start: 20110913, end: 20111217
  2. COSOPT OPHTHALMIC SOLUTION [Suspect]
     Indication: EYE DISORDER
  3. SANPILO [Concomitant]
     Indication: GLAUCOMA
     Dosage: 4 GTT, QD
     Route: 047
     Dates: start: 20010819, end: 20120227
  4. SANPILO [Concomitant]
     Indication: OCULAR HYPERTENSION
  5. DIAMOX [Concomitant]
     Indication: GLAUCOMA
     Dosage: 250 MG, QD
     Route: 048
     Dates: start: 20001122, end: 20111217
  6. ASPARA K [Concomitant]
     Indication: PROPHYLAXIS
     Dosage: 300 MG, QD
     Route: 048
     Dates: start: 20001122, end: 20111217
  7. CUMOROL [Concomitant]
     Indication: CONJUNCTIVITIS ALLERGIC
     Dosage: 1 GTT, QD
     Route: 047
     Dates: start: 20040820, end: 20120227

REACTIONS (2)
  - Death [Fatal]
  - Dysuria [Recovered/Resolved]
